FAERS Safety Report 7952083-X (Version None)
Quarter: 2011Q4

REPORT INFORMATION
  Report Type: 
  Country: None (occurrence: None)
  Receive Date: 20111201
  Receipt Date: 20111122
  Transmission Date: 20120403
  Serious: No
  Sender: FDA-Public Use
  Company Number: US-US-EMD SERONO, INC.-7095779

PATIENT
  Sex: Female

DRUGS (1)
  1. REBIF [Suspect]
     Indication: MULTIPLE SCLEROSIS
     Route: 058
     Dates: start: 20090320

REACTIONS (4)
  - INJECTION SITE PAIN [None]
  - MYALGIA [None]
  - SKIN MASS [None]
  - INJECTION SITE ERYTHEMA [None]
